FAERS Safety Report 8577298-1 (Version None)
Quarter: 2012Q3

REPORT INFORMATION
  Report Type: 
  Country: None (occurrence: None)
  Receive Date: 20120807
  Receipt Date: 20120710
  Transmission Date: 20120928
  Serious: No
  Sender: FDA-Public Use
  Company Number: US-COVIDIEN/TYCO HEALTHCARE/MALLINCKRODT-T201202504

PATIENT
  Age: 63 Year

DRUGS (9)
  1. CARDIZEM [Concomitant]
     Indication: HYPERTENSION
  2. LIDOCAINE HYDROCHLORIDE [Suspect]
     Indication: FRACTURE
     Dosage: 1 PATCH EVERY 4 HOURS ON TOP OF WHERE PENNSAID WAS APPLIED
  3. PENNSAID [Suspect]
     Dosage: 10 GTTS TID TO HIP
     Route: 061
  4. OMEPRAZOLE [Concomitant]
     Dosage: 2 X PER DAY
  5. IBUPROFEN [Concomitant]
     Indication: SWELLING
  6. IBUPROFEN [Concomitant]
     Indication: PAIN
  7. PENNSAID [Suspect]
     Indication: FRACTURE
     Dosage: 20 GTTS TO HIP, TID
     Dates: start: 20110901, end: 20120301
  8. PENNSAID [Suspect]
     Indication: ARTHRALGIA
     Dosage: 10 GTT TO TOE AND ANKLE, TID
     Dates: start: 20110901, end: 20120301
  9. TYLENOL (CAPLET) [Concomitant]
     Indication: PAIN

REACTIONS (9)
  - NAUSEA [None]
  - ABDOMINAL PAIN [None]
  - FLATULENCE [None]
  - GASTROOESOPHAGEAL REFLUX DISEASE [None]
  - DYSPNOEA [None]
  - NEUROLOGICAL SYMPTOM [None]
  - CHANGE OF BOWEL HABIT [None]
  - MALAISE [None]
  - CHEST PAIN [None]
